FAERS Safety Report 16497440 (Version 2)
Quarter: 2019Q3

REPORT INFORMATION
  Report Type: Spontaneous
  Country: JP (occurrence: JP)
  Receive Date: 20190628
  Receipt Date: 20190701
  Transmission Date: 20191004
  Serious: Yes (Death, Other)
  Sender: FDA-Public Use
  Company Number: JP-VIFOR (INTERNATIONAL) INC.-VIT-2019-04295

PATIENT
  Age: 91 Year
  Sex: Female

DRUGS (9)
  1. MIRCERA [Suspect]
     Active Substance: METHOXY POLYETHYLENE GLYCOL-EPOETIN BETA
     Route: 041
     Dates: start: 20190412
  2. TRANSAMIN [Concomitant]
     Active Substance: TRANEXAMIC ACID
     Route: 065
  3. MIRCERA [Suspect]
     Active Substance: METHOXY POLYETHYLENE GLYCOL-EPOETIN BETA
     Indication: PRODUCT USED FOR UNKNOWN INDICATION
     Route: 058
     Dates: start: 20190326, end: 20190412
  4. LANSOPRAZOLE. [Concomitant]
     Active Substance: LANSOPRAZOLE
     Route: 065
  5. MEMARY [Concomitant]
     Active Substance: MEMANTINE HYDROCHLORIDE
     Route: 065
  6. ADONA [Concomitant]
     Route: 065
  7. FERROMIA [Concomitant]
     Active Substance: SODIUM FERROUS CITRATE
     Route: 065
  8. LIXIANA [Concomitant]
     Active Substance: EDOXABAN TOSYLATE
     Route: 065
     Dates: end: 201904
  9. MAGMITT [Concomitant]
     Active Substance: MAGNESIUM OXIDE
     Route: 065

REACTIONS (3)
  - Haematuria [Unknown]
  - Serum ferritin decreased [Unknown]
  - Lung neoplasm malignant [Fatal]

NARRATIVE: CASE EVENT DATE: 2019
